FAERS Safety Report 4302000-9 (Version None)
Quarter: 2004Q1

REPORT INFORMATION
  Report Type: 
  Country: None (occurrence: None)
  Receive Date: 20040220
  Receipt Date: 20040129
  Transmission Date: 20041129
  Serious: Yes (Hospitalization, Other)
  Sender: FDA-Public Use
  Company Number: US-JNJFOC-20040106074

PATIENT
  Age: 61 Year
  Sex: Female
  Weight: 92.0802 kg

DRUGS (2)
  1. INFLIXIMAB (INFLIXIMAB, RECOMBINANT) LYOPHILIZED POWDER [Suspect]
     Indication: CROHN'S DISEASE
  2. MESALAMINE [Concomitant]

REACTIONS (3)
  - BONE LESION [None]
  - BONE NEOPLASM MALIGNANT [None]
  - METASTASIS [None]
